FAERS Safety Report 9647724 (Version 1)
Quarter: 2013Q4

REPORT INFORMATION
  Report Type: Spontaneous
  Country: US (occurrence: None)
  Receive Date: 20131024
  Receipt Date: 20131024
  Transmission Date: 20140711
  Serious: Yes (Hospitalization)
  Sender: FDA-Public Use
  Company Number: None

PATIENT
  Age: 43 Year
  Sex: Female
  Weight: 74.84 kg

DRUGS (12)
  1. XARELTO [Suspect]
     Indication: PELVIC VENOUS THROMBOSIS
     Dosage: 1 PILL ONCE DAILY
     Dates: end: 20131008
  2. COUMADIN [Concomitant]
  3. LASIX [Concomitant]
  4. K-DUR [Concomitant]
  5. TIAZAC [Concomitant]
  6. DIOVAN [Concomitant]
  7. PROTONIX [Concomitant]
  8. LAMICTAL [Concomitant]
  9. PLAQUENIL [Concomitant]
  10. LEVOXYL [Concomitant]
  11. FOLIC ACID [Concomitant]
  12. WOMENS GUMMY VITAMINS [Concomitant]

REACTIONS (1)
  - Cerebrovascular accident [None]
